FAERS Safety Report 9977149 (Version 1)
Quarter: 2014Q1

REPORT INFORMATION
  Report Type: Report from Study
  Country: US (occurrence: US)
  Receive Date: 20140306
  Receipt Date: 20140306
  Transmission Date: 20141002
  Serious: No
  Sender: FDA-Public Use
  Company Number: US-ABBVIE-13P-163-1168875-00

PATIENT
  Age: 50 Year
  Sex: Male

DRUGS (6)
  1. HUMIRA [Suspect]
     Indication: COLITIS ULCERATIVE
     Dates: start: 201308
  2. LIADLA [Concomitant]
     Indication: COLITIS ULCERATIVE
  3. SIMCOR [Concomitant]
     Indication: BLOOD CHOLESTEROL
     Dosage: 200-20 MG DAILY
  4. ASPIRIN [Concomitant]
     Indication: PROPHYLAXIS
     Dosage: 325 MG DAILY
  5. RESTASIS [Concomitant]
     Indication: DRY EYE
     Dosage: ONE DROP BOTH EYES
  6. MULTIVITAMIN [Concomitant]
     Indication: SUPPLEMENTATION THERAPY

REACTIONS (1)
  - Medication error [Recovered/Resolved]
